FAERS Safety Report 5357510-2 (Version None)
Quarter: 2007Q2

REPORT INFORMATION
  Report Type: 
  Country: None (occurrence: None)
  Receive Date: 20070614
  Receipt Date: 20070604
  Transmission Date: 20071010
  Serious: Yes (Hospitalization)
  Sender: FDA-Public Use
  Company Number: US-ABBOTT-07P-163-0370989-00

PATIENT
  Age: 57 Year
  Sex: Female

DRUGS (1)
  1. OMNICEF [Suspect]
     Indication: DRUG USE FOR UNKNOWN INDICATION
     Dates: start: 20061101, end: 20061101

REACTIONS (7)
  - DIARRHOEA [None]
  - HAEMORRHAGE [None]
  - JOINT SWELLING [None]
  - MOVEMENT DISORDER [None]
  - OEDEMA PERIPHERAL [None]
  - PAIN [None]
  - RHEUMATOID ARTHRITIS [None]
